FAERS Safety Report 17574703 (Version 1)
Quarter: 2020Q1

REPORT INFORMATION
  Report Type: Spontaneous
  Country: DE (occurrence: DE)
  Receive Date: 20200324
  Receipt Date: 20200324
  Transmission Date: 20200409
  Serious: Yes (Other)
  Sender: FDA-Public Use
  Company Number: DE-009507513-2003DEU006752

PATIENT
  Age: 44 Year
  Sex: Male
  Weight: 96 kg

DRUGS (2)
  1. MEROPENEM. [Concomitant]
     Active Substance: MEROPENEM
     Indication: INFECTION
     Dosage: 1 GRAM
     Route: 042
  2. CASPOFUNGIN ACETATE. [Suspect]
     Active Substance: CASPOFUNGIN ACETATE
     Indication: CANDIDA INFECTION
     Dosage: 50 MILLIGRAM (1ST DAY OF TREATMENT. INDICATION: PANCREATIC PSEUDOCYST)
     Route: 041

REACTIONS (5)
  - Dermatitis allergic [Recovered/Resolved]
  - Tachypnoea [Recovered/Resolved]
  - Face oedema [Recovered/Resolved]
  - Hypotension [Recovered/Resolved]
  - Anaphylactic reaction [Recovered/Resolved]

NARRATIVE: CASE EVENT DATE: 20200127
